FAERS Safety Report 4944173-0 (Version None)
Quarter: 2006Q1

REPORT INFORMATION
  Report Type: 
  Country: None (occurrence: None)
  Receive Date: 20060309
  Receipt Date: 20060222
  Transmission Date: 20060701
  Serious: Yes (Hospitalization)
  Sender: FDA-Public Use
  Company Number: US-2006-000587

PATIENT
  Age: 57 Year
  Sex: Female

DRUGS (5)
  1. BETASERON [Suspect]
     Indication: RELAPSING-REMITTING MULTIPLE SCLEROSIS
     Dosage: 8 MIU, EVERY 2D, SUBCUTANEOUS
     Route: 058
     Dates: start: 20040708
  2. PROVERA [Concomitant]
  3. PREMARIN /SCH/ (ESTROGENS CONJUGATED, MEDROGESTONE) [Concomitant]
  4. ADVAIR DISKUS 100/50 [Concomitant]
  5. ALBUTEROL [Concomitant]

REACTIONS (4)
  - EMPYEMA [None]
  - LOBAR PNEUMONIA [None]
  - LUNG ABSCESS [None]
  - PYOTHORAX [None]
